FAERS Safety Report 5689110-9 (Version None)
Quarter: 2008Q1

REPORT INFORMATION
  Report Type: 
  Country: None (occurrence: None)
  Receive Date: 20080331
  Receipt Date: 19780821
  Transmission Date: 20080703
  Serious: Yes (Death, Disabling)
  Sender: FDA-Public Use
  Company Number: PH-ROCHE-780120218001

PATIENT

DRUGS (1)
  1. VALIUM [Suspect]
     Indication: CHEST PAIN
     Route: 042

REACTIONS (1)
  - DEATH [None]
